FAERS Safety Report 20836993 (Version 1)
Quarter: 2022Q2

REPORT INFORMATION
  Report Type: Spontaneous
  Country: JP (occurrence: JP)
  Receive Date: 20220517
  Receipt Date: 20220517
  Transmission Date: 20220720
  Serious: Yes (Hospitalization)
  Sender: FDA-Public Use
  Company Number: JP-NOVARTISPH-NVSJ2022JP089973

PATIENT
  Age: 73 Year
  Sex: Male

DRUGS (4)
  1. TAFINLAR [Suspect]
     Active Substance: DABRAFENIB MESYLATE
     Indication: Malignant melanoma stage II
     Dosage: UNK
     Route: 048
     Dates: end: 202002
  2. TAFINLAR [Suspect]
     Active Substance: DABRAFENIB MESYLATE
     Dosage: UNK, INTERMITTENT ADMINISTRATION (1 WEEK ORAL ADMINISTRATION, 1 WEEK DRUG CESSATION)
     Route: 048
     Dates: start: 202003
  3. MEKINIST [Suspect]
     Active Substance: TRAMETINIB DIMETHYL SULFOXIDE
     Indication: Malignant melanoma stage II
     Dosage: UNK
     Route: 048
     Dates: end: 202002
  4. MEKINIST [Suspect]
     Active Substance: TRAMETINIB DIMETHYL SULFOXIDE
     Dosage: UNK, INTERMITTENT ADMINISTRATION (1 WEEK ORAL ADMINISTRATION, 1 WEEK DRUG CESSATION)
     Route: 048
     Dates: start: 202003

REACTIONS (4)
  - Pyrexia [Recovered/Resolved]
  - C-reactive protein increased [Recovered/Resolved]
  - Liver function test increased [Recovered/Resolved]
  - Product use issue [Unknown]

NARRATIVE: CASE EVENT DATE: 20200201
